APPROVED DRUG PRODUCT: AMITRIPTYLINE HYDROCHLORIDE
Active Ingredient: AMITRIPTYLINE HYDROCHLORIDE
Strength: 150MG
Dosage Form/Route: TABLET;ORAL
Application: A089423 | Product #001
Applicant: MUTUAL PHARMACEUTICAL CO INC
Approved: Feb 17, 1987 | RLD: No | RS: No | Type: DISCN